FAERS Safety Report 15295318 (Version 1)
Quarter: 2018Q3

REPORT INFORMATION
  Report Type: Spontaneous
  Country: US (occurrence: US)
  Receive Date: 20180807
  Receipt Date: 20180807
  Transmission Date: 20181010
  Serious: Yes (Disabling)
  Sender: FDA-Public Use
  Company Number: None

PATIENT
  Age: 58 Year
  Sex: Female
  Weight: 127.35 kg

DRUGS (1)
  1. VALSARTAN TABLETS, USP 80 MG, 90 TABLETS [Suspect]
     Active Substance: VALSARTAN
     Indication: HYPERTENSION
     Dosage: ?          QUANTITY:1 TABLET(S);?
     Route: 048
     Dates: end: 20180803

REACTIONS (3)
  - Hyperplastic cholecystopathy [None]
  - Diarrhoea [None]
  - Autoimmune colitis [None]

NARRATIVE: CASE EVENT DATE: 20180719
